FAERS Safety Report 7912055-8 (Version None)
Quarter: 2011Q4

REPORT INFORMATION
  Report Type: 
  Country: None (occurrence: None)
  Receive Date: 20111114
  Receipt Date: 20111102
  Transmission Date: 20120403
  Serious: Yes (Other)
  Sender: FDA-Public Use
  Company Number: GB-TEVA-308023ISR

PATIENT
  Age: 50 Year
  Sex: Female
  Weight: 74 kg

DRUGS (2)
  1. ACETAMINOPHEN AND CODEINE PHOSPHATE [Concomitant]
     Indication: HEADACHE
     Dosage: ONE PRESCRIPTION ONLY - 30 TABLETS. 2 FOUR TIMES A DAY AS NECESSARY.
     Route: 048
     Dates: start: 20110628
  2. LOSARTAN [Suspect]
     Indication: HYPERTENSION
     Route: 048
     Dates: start: 20110213, end: 20110923

REACTIONS (2)
  - DEMYELINATION [None]
  - HEADACHE [None]
